FAERS Safety Report 21045010 (Version 2)
Quarter: 2022Q4

REPORT INFORMATION
  Report Type: Report from Study
  Country: CN (occurrence: CN)
  Receive Date: 20220705
  Receipt Date: 20221017
  Transmission Date: 20230113
  Serious: Yes (Life-Threatening)
  Sender: FDA-Public Use
  Company Number: CN-JNJFOC-20220658486

PATIENT
  Age: 65 Year
  Sex: Male
  Weight: 54 kg

DRUGS (6)
  1. CILTACABTAGENE AUTOLEUCEL [Suspect]
     Active Substance: CILTACABTAGENE AUTOLEUCEL
     Indication: Plasma cell myeloma refractory
     Dosage: 44.69 X10^6 CAR-POSITIVE VIABLE T-CELLS.
     Route: 042
     Dates: start: 20220408, end: 20220408
  2. CYCLOPHOSPHAMIDE [Concomitant]
     Active Substance: CYCLOPHOSPHAMIDE
     Indication: Plasma cell myeloma refractory
     Route: 065
     Dates: start: 20220403
  3. FLUDARABINE [Concomitant]
     Active Substance: FLUDARABINE PHOSPHATE
     Indication: Plasma cell myeloma refractory
     Route: 065
     Dates: start: 20220403
  4. BORTEZOMIB [Concomitant]
     Active Substance: BORTEZOMIB
     Indication: Plasma cell myeloma refractory
     Dosage: BRIDGING THERAPY-D1,4,8 AND 11
     Route: 065
     Dates: start: 20220307
  5. DEXAMETHASONE [Concomitant]
     Active Substance: DEXAMETHASONE
     Indication: Plasma cell myeloma refractory
     Dosage: BRIDGING THERAPY?D1-2,4-5,8-9,11-12
     Route: 065
     Dates: start: 20220307
  6. POMALIDOMIDE [Concomitant]
     Active Substance: POMALIDOMIDE
     Indication: Plasma cell myeloma refractory
     Dosage: BRIDGING THERAPY?D1-14 (D12 TREATMENT WAS DISCONTINUED DUE TO PULMONARY INFECTION)
     Route: 065
     Dates: start: 20220307

REACTIONS (2)
  - Escherichia sepsis [Not Recovered/Not Resolved]
  - Shock haemorrhagic [Not Recovered/Not Resolved]

NARRATIVE: CASE EVENT DATE: 20220624
